FAERS Safety Report 4664282-3 (Version None)
Quarter: 2005Q2

REPORT INFORMATION
  Report Type: 
  Country: None (occurrence: None)
  Receive Date: 20050516
  Receipt Date: 20050428
  Transmission Date: 20051028
  Serious: Yes (Hospitalization)
  Sender: FDA-Public Use
  Company Number: 106537ISR

PATIENT
  Age: 19 Year
  Sex: Female

DRUGS (4)
  1. ETOPOSIDE [Suspect]
     Indication: OVARIAN GERM CELL CANCER
     Dosage: 126 MILLIGRAM INTRAVENOUS (NOS)
     Route: 042
     Dates: start: 20041001, end: 20041213
  2. CISPLATIN [Suspect]
     Indication: OVARIAN GERM CELL CANCER
     Dosage: 26 MILLIGRAM INTRAVENOUS (NOS)
     Route: 042
     Dates: start: 20041001, end: 20041213
  3. BLEOMYCIN [Suspect]
     Indication: OVARIAN GERM CELL CANCER
     Dosage: 30 MILLIGRAM INTRAVENOUS (NOS)
     Route: 042
     Dates: start: 20041001, end: 20041213
  4. KEPPRA [Suspect]
     Indication: EPILEPSY
     Dosage: ORAL
     Route: 048
     Dates: start: 20050201

REACTIONS (8)
  - ANURIA [None]
  - DEHYDRATION [None]
  - DIALYSIS [None]
  - EPILEPSY [None]
  - HAEMOLYTIC ANAEMIA [None]
  - HAEMOLYTIC URAEMIC SYNDROME [None]
  - HYPERTENSION [None]
  - RENAL FAILURE ACUTE [None]
